FAERS Safety Report 4434294-3 (Version None)
Quarter: 2004Q3

REPORT INFORMATION
  Report Type: 
  Country: None (occurrence: None)
  Receive Date: 20040825
  Receipt Date: 20040813
  Transmission Date: 20050211
  Serious: Yes (Other)
  Sender: FDA-Public Use
  Company Number: K200401238

PATIENT
  Age: 62 Year
  Sex: Female

DRUGS (9)
  1. SEPTRA [Suspect]
     Indication: LOWER RESPIRATORY TRACT INFECTION
     Dosage: 2400 MG, QD, ORAL
     Route: 048
     Dates: start: 20031219, end: 20031231
  2. VFEND [Suspect]
     Indication: LOWER RESPIRATORY TRACT INFECTION
     Dosage: 200 MG, BID, ORAL
     Route: 048
     Dates: start: 20031219, end: 20040112
  3. CYCLIZINE (CYCLIZINE) [Concomitant]
  4. LANSOPRAZOLE [Concomitant]
  5. ATENOLOL [Concomitant]
  6. METOCLOPRAMIDE (METOCLORPAMIDE) [Concomitant]
  7. HEPARIN [Concomitant]
  8. COMBIVET (IPRATROPIUM BROMIDE, SALBUTAMOL SULFATE) [Concomitant]
  9. FRGAMIN (HEPARIN-FRACTION, SODIUM SALT) [Concomitant]

REACTIONS (6)
  - CEREBELLAR INFARCTION [None]
  - INAPPROPRIATE ANTIDIURETIC HORMONE SECRETION [None]
  - MOBILITY DECREASED [None]
  - MYOCLONUS [None]
  - PLATELET COUNT DECREASED [None]
  - TREMOR [None]
